FAERS Safety Report 14873451 (Version 1)
Quarter: 2018Q2

REPORT INFORMATION
  Report Type: Spontaneous
  Country: US (occurrence: US)
  Receive Date: 20180510
  Receipt Date: 20180510
  Transmission Date: 20180711
  Serious: Yes (Death, Other)
  Sender: FDA-Public Use
  Company Number: US-AMGEN-USASP2018062371

PATIENT
  Age: 85 Year
  Sex: Female

DRUGS (1)
  1. PROLIA [Suspect]
     Active Substance: DENOSUMAB
     Indication: OSTEOPOROSIS
     Dosage: 60 MG, UNK
     Route: 065
     Dates: start: 201802, end: 201802

REACTIONS (7)
  - Skin lesion [Unknown]
  - Asthenia [Unknown]
  - Swelling [Unknown]
  - Creatinine renal clearance abnormal [Unknown]
  - C-reactive protein increased [Unknown]
  - Death [Fatal]
  - Urine output decreased [Unknown]

NARRATIVE: CASE EVENT DATE: 201803
